FAERS Safety Report 22838981 (Version 7)
Quarter: 2023Q4

REPORT INFORMATION
  Report Type: Spontaneous
  Country: US (occurrence: US)
  Receive Date: 20230818
  Receipt Date: 20231121
  Transmission Date: 20240110
  Serious: Yes (Other)
  Sender: FDA-Public Use
  Company Number: US-Blueprint Medicines Corporation-1362

PATIENT
  Age: 53 Year
  Sex: Male

DRUGS (3)
  1. AYVAKIT [Suspect]
     Active Substance: AVAPRITINIB
     Indication: Gastrointestinal stromal tumour
     Route: 048
     Dates: start: 20230728, end: 20231013
  2. AYVAKIT [Suspect]
     Active Substance: AVAPRITINIB
     Route: 065
  3. AYVAKIT [Suspect]
     Active Substance: AVAPRITINIB
     Route: 065

REACTIONS (15)
  - Skin haemorrhage [Unknown]
  - Capillary fragility [Unknown]
  - Fatigue [Unknown]
  - Pigmentation disorder [Unknown]
  - Haemoglobin abnormal [Unknown]
  - Laboratory test abnormal [Unknown]
  - Hair colour changes [Unknown]
  - Red blood cell count abnormal [Not Recovered/Not Resolved]
  - Adverse drug reaction [Not Recovered/Not Resolved]
  - Brain fog [Unknown]
  - Memory impairment [Not Recovered/Not Resolved]
  - Swollen tongue [Unknown]
  - Oropharyngeal pain [Not Recovered/Not Resolved]
  - Dry mouth [Not Recovered/Not Resolved]
  - Pruritus [Unknown]

NARRATIVE: CASE EVENT DATE: 20231012
